FAERS Safety Report 14245340 (Version 1)
Quarter: 2017Q4

REPORT INFORMATION
  Report Type: Spontaneous
  Country: US (occurrence: US)
  Receive Date: 20171202
  Receipt Date: 20171202
  Transmission Date: 20180321
  Serious: No
  Sender: FDA-Public Use
  Company Number: US-ENDO PHARMACEUTICALS INC-2017-004703

PATIENT
  Age: 64 Year
  Sex: Male

DRUGS (6)
  1. VALIUM [Concomitant]
     Active Substance: DIAZEPAM
     Indication: ANXIETY
  2. XIAFLEX [Suspect]
     Active Substance: COLLAGENASE CLOSTRIDIUM HISTOLYTICUM
     Indication: PEYRONIE^S DISEASE
     Dosage: 0.58 MG, SINGLE, SECOND INJECTION, SECOND CYCLE
     Route: 026
     Dates: start: 201708, end: 20170824
  3. XIAFLEX [Suspect]
     Active Substance: COLLAGENASE CLOSTRIDIUM HISTOLYTICUM
     Dosage: 0.58 MG, FIRST INJECTION, FIRST CYCLE, SINGLE
     Route: 026
     Dates: start: 20170712
  4. XIAFLEX [Suspect]
     Active Substance: COLLAGENASE CLOSTRIDIUM HISTOLYTICUM
     Dosage: 0.58 MG, SINGLE, FIRST INJECTION, SECOND CYCLE
     Route: 026
     Dates: start: 201708, end: 20170824
  5. XIAFLEX [Suspect]
     Active Substance: COLLAGENASE CLOSTRIDIUM HISTOLYTICUM
     Dosage: 0.58 MG, SECOND INJECTION, FIRST CYCLE, SINGLE
     Route: 026
     Dates: start: 2017
  6. VIAGRA [Concomitant]
     Active Substance: SILDENAFIL CITRATE
     Indication: ERECTILE DYSFUNCTION

REACTIONS (3)
  - Inappropriate schedule of drug administration [Recovered/Resolved]
  - Penile contusion [Recovered/Resolved]
  - Penile blister [Not Recovered/Not Resolved]

NARRATIVE: CASE EVENT DATE: 201708
